FAERS Safety Report 5032411-8 (Version None)
Quarter: 2006Q2

REPORT INFORMATION
  Report Type: 
  Country: None (occurrence: None)
  Receive Date: 20060621
  Receipt Date: 20060621
  Transmission Date: 20061013
  Serious: Yes (Hospitalization)
  Sender: FDA-Public Use
  Company Number: None

PATIENT
  Age: 65 Year
  Sex: Female
  Weight: 111 kg

DRUGS (10)
  1. MERREM I.V. [Suspect]
     Indication: NEUTROPENIA
     Dosage: 1 GRAM  EVERY 8 HRS   IV
     Route: 042
     Dates: start: 20060616, end: 20060620
  2. FLUCONAZOLE [Concomitant]
  3. LANSOPRAZOLE [Concomitant]
  4. MITOXANTRONE [Concomitant]
  5. PROCHLORPERAZINE [Concomitant]
  6. PROMETHAZINE [Concomitant]
  7. DARVOCET-N 100 [Concomitant]
  8. CYTARABINE [Concomitant]
  9. ETOPOSIDE [Concomitant]
  10. ACYCLOVIR [Concomitant]

REACTIONS (2)
  - BLISTER [None]
  - RASH [None]
